FAERS Safety Report 20940737 (Version 2)
Quarter: 2022Q3

REPORT INFORMATION
  Report Type: Spontaneous
  Country: ES (occurrence: ES)
  Receive Date: 20220609
  Receipt Date: 20220715
  Transmission Date: 20221026
  Serious: Yes (Other)
  Sender: FDA-Public Use
  Company Number: ES-NOVARTISPH-NVSC2022ES132444

PATIENT
  Age: 31 Year
  Sex: Female

DRUGS (1)
  1. COSENTYX [Suspect]
     Active Substance: SECUKINUMAB
     Indication: Lichen planus
     Dosage: 300 MG
     Route: 058
     Dates: start: 20220525, end: 20220525

REACTIONS (10)
  - Urticaria [Recovered/Resolved]
  - Skin lesion [Recovered/Resolved]
  - Off label use [Unknown]
  - Erythema [Unknown]
  - Papule [Unknown]
  - Pruritus [Unknown]
  - Oedema [Unknown]
  - Skin disorder [Unknown]
  - Dyspnoea [Unknown]
  - Rash [Unknown]

NARRATIVE: CASE EVENT DATE: 20220525
